FAERS Safety Report 22907543 (Version 3)
Quarter: 2023Q4

REPORT INFORMATION
  Report Type: Spontaneous
  Country: CA (occurrence: CA)
  Receive Date: 20230905
  Receipt Date: 20231026
  Transmission Date: 20240109
  Serious: Yes (Other)
  Sender: FDA-Public Use
  Company Number: CA-PFIZER INC-202201391917

PATIENT
  Age: 54 Year
  Sex: Female

DRUGS (2)
  1. RUXIENCE [Suspect]
     Active Substance: RITUXIMAB-PVVR
     Indication: Rheumatoid arthritis
     Dosage: 1000 MG, DAY 1 AND DAY 15
     Route: 042
     Dates: start: 20230814
  2. RUXIENCE [Suspect]
     Active Substance: RITUXIMAB-PVVR
     Dosage: 1000 MG, DAY 1 AND DAY 15 (TOTAL OF 140 ML OF RUXIENCE 1000 MG/250 ML)
     Route: 042
     Dates: start: 20230829, end: 20230829

REACTIONS (9)
  - Skin reaction [Recovered/Resolved]
  - Erythema [Recovered/Resolved]
  - Palmar erythema [Recovered/Resolved]
  - Chest discomfort [Recovered/Resolved]
  - Ocular hyperaemia [Recovering/Resolving]
  - Eye pruritus [Recovered/Resolved]
  - Anxiety [Recovered/Resolved]
  - Urticaria [Recovered/Resolved]
  - Rash [Recovered/Resolved]

NARRATIVE: CASE EVENT DATE: 20230829
